FAERS Safety Report 5631916-6 (Version None)
Quarter: 2008Q1

REPORT INFORMATION
  Report Type: 
  Country: None (occurrence: None)
  Receive Date: 20080212
  Receipt Date: 20080204
  Transmission Date: 20080703
  Serious: Yes (Death)
  Sender: FDA-Public Use
  Company Number: 056-C5013-07080150

PATIENT
  Age: 72 Year
  Sex: Male

DRUGS (6)
  1. CC-5013 (LENALIDOMIDE) (CAPSULES) [Suspect]
     Indication: MULTIPLE MYELOMA
     Dosage: 25-10MG, DAILY, ORAL; 10 MG, ORAL
     Route: 048
  2. XANAX [Concomitant]
  3. MORPHINE [Concomitant]
  4. ACETAMINOPHEN [Concomitant]
  5. DEXAMETHASONE TAB [Concomitant]
  6. PRIMPERAN TAB [Concomitant]

REACTIONS (1)
  - RESPIRATORY FAILURE [None]
